FAERS Safety Report 9917622 (Version 2)
Quarter: 2014Q1

REPORT INFORMATION
  Report Type: Spontaneous
  Country: US (occurrence: US)
  Receive Date: 20140221
  Receipt Date: 20140221
  Transmission Date: 20141002
  Serious: Yes (Other)
  Sender: FDA-Public Use
  Company Number: US-GE HEALTHCARE MEDICAL DIAGNOSTICS-OSCN-PR-0908S-0382

PATIENT
  Age: 48 Year
  Sex: Female

DRUGS (5)
  1. OMNISCAN [Suspect]
     Indication: BILIARY DILATATION
     Route: 042
     Dates: start: 20040526, end: 20040526
  2. OMNISCAN [Suspect]
     Indication: BILE DUCT STONE
     Route: 042
     Dates: start: 20040604, end: 20040604
  3. OMNISCAN [Suspect]
     Indication: PANCREATITIS
     Route: 042
     Dates: start: 20050818, end: 20050818
  4. OMNISCAN [Suspect]
     Indication: PYREXIA
  5. OMNISCAN [Suspect]
     Indication: BILE DUCT STONE

REACTIONS (1)
  - Nephrogenic systemic fibrosis [Not Recovered/Not Resolved]
